FAERS Safety Report 10039161 (Version 1)
Quarter: 2014Q1

REPORT INFORMATION
  Report Type: Spontaneous
  Country: IN (occurrence: IN)
  Receive Date: 20140326
  Receipt Date: 20140326
  Transmission Date: 20141002
  Serious: Yes (Death, Other)
  Sender: FDA-Public Use
  Company Number: PHHY2014IN034311

PATIENT
  Age: 26 Year
  Sex: Male

DRUGS (9)
  1. DICLOFENAC [Suspect]
  2. HEPARIN [Suspect]
  3. DEXAMETHASONE [Suspect]
  4. TRAMADOL [Suspect]
  5. PHENIRAMINE [Suspect]
  6. SALBUTAMOL [Suspect]
     Indication: HYPERKALAEMIA
  7. CALCIUM GLUCONATE INJ USP [Suspect]
     Indication: HYPERKALAEMIA
  8. DEXTROSE [Suspect]
     Indication: HYPERKALAEMIA
  9. INSULIN [Suspect]
     Indication: HYPERKALAEMIA

REACTIONS (21)
  - Hyperkalaemia [Fatal]
  - Areflexia [Fatal]
  - Muscular weakness [Fatal]
  - Tachypnoea [Fatal]
  - Hypokinesia [Unknown]
  - Left ventricular dysfunction [Unknown]
  - Ejection fraction decreased [Unknown]
  - Lactic acidosis [Unknown]
  - Metabolic acidosis [Unknown]
  - Ventricular fibrillation [Unknown]
  - Coagulopathy [Unknown]
  - Thrombocytopenia [Unknown]
  - Blister [Unknown]
  - Sepsis [Unknown]
  - Septic shock [Unknown]
  - Upper gastrointestinal haemorrhage [Unknown]
  - Staphylococcal infection [Unknown]
  - Cardiac arrest [Unknown]
  - Drug dependence [Unknown]
  - Substance abuse [Unknown]
  - Drug ineffective [Unknown]
